FAERS Safety Report 4615723-9 (Version None)
Quarter: 2005Q2

REPORT INFORMATION
  Report Type: 
  Country: None (occurrence: None)
  Receive Date: 20050310
  Receipt Date: 20041117
  Transmission Date: 20051028
  Serious: No
  Sender: FDA-Public Use
  Company Number: A03200403527

PATIENT
  Age: 64 Year
  Sex: Female
  Weight: 73 kg

DRUGS (7)
  1. ELOXATIN [Suspect]
     Indication: RECTAL CANCER
     Dosage: 150 MG OTHER - INTRAVENOUS NOS
     Route: 042
     Dates: start: 20041019, end: 20041019
  2. FLUOROURACIL [Concomitant]
  3. LEUCOVORIN [Concomitant]
  4. DEXAMETHASONE [Concomitant]
  5. DARBEPOETIN ALFA [Concomitant]
  6. BEVACIZUMAB [Concomitant]
  7. PALONOSETRON [Concomitant]

REACTIONS (6)
  - DYSPNOEA [None]
  - FEELING ABNORMAL [None]
  - HYPERTENSION [None]
  - LARYNGOSPASM [None]
  - PANIC REACTION [None]
  - THROAT TIGHTNESS [None]
